FAERS Safety Report 8048330-9 (Version None)
Quarter: 2012Q1

REPORT INFORMATION
  Report Type: 
  Country: None (occurrence: None)
  Receive Date: 20120117
  Receipt Date: 20120112
  Transmission Date: 20120608
  Serious: No
  Sender: FDA-Public Use
  Company Number: US-PFIZER INC-2011258759

PATIENT
  Sex: Male

DRUGS (2)
  1. SUTENT [Suspect]
     Dosage: 50 MG, UNK
     Dates: start: 20111001
  2. SUTENT [Suspect]
     Indication: MALIGNANT NEOPLASM OF RENAL PELVIS
     Dosage: 37.5 MG, UNK
     Dates: start: 20111012

REACTIONS (11)
  - WEIGHT DECREASED [None]
  - DYSGEUSIA [None]
  - FATIGUE [None]
  - PRESYNCOPE [None]
  - BACK PAIN [None]
  - DIARRHOEA [None]
  - IRRITABILITY [None]
  - DECREASED APPETITE [None]
  - CONSTIPATION [None]
  - GLOSSODYNIA [None]
  - PAIN IN EXTREMITY [None]
